FAERS Safety Report 23076223 (Version 1)
Quarter: 2023Q4

REPORT INFORMATION
  Report Type: Spontaneous
  Country: US (occurrence: US)
  Receive Date: 20231017
  Receipt Date: 20231017
  Transmission Date: 20240110
  Serious: Yes (Life-Threatening, Other)
  Sender: FDA-Public Use
  Company Number: US-BAUSCH-BL-2023-015199

PATIENT
  Age: 21 Year
  Sex: Female

DRUGS (1)
  1. BUPROPION [Suspect]
     Active Substance: BUPROPION
     Indication: Product used for unknown indication
     Dosage: INGESTION
     Route: 048

REACTIONS (5)
  - Circulatory collapse [Recovered/Resolved]
  - Dysarthria [Recovered/Resolved]
  - Myoclonus [Recovered/Resolved]
  - Arrhythmia [Recovered/Resolved]
  - Intentional overdose [Unknown]
